FAERS Safety Report 20007806 (Version 2)
Quarter: 2021Q4

REPORT INFORMATION
  Report Type: Spontaneous
  Country: US (occurrence: US)
  Receive Date: 20211029
  Receipt Date: 20211121
  Transmission Date: 20220303
  Serious: Yes (Hospitalization, Other)
  Sender: FDA-Public Use
  Company Number: US-009507513-2110USA005095

PATIENT
  Age: 71 Year
  Sex: Female

DRUGS (33)
  1. PRINIVIL [Suspect]
     Active Substance: LISINOPRIL
     Indication: Hypertension
     Route: 048
  2. HYDROCHLOROTHIAZIDE [Suspect]
     Active Substance: HYDROCHLOROTHIAZIDE
     Indication: Hypertension
  3. VALSARTAN [Suspect]
     Active Substance: VALSARTAN
     Indication: Hypertension
  4. RASPBERRY KETONE [Concomitant]
     Active Substance: RASPBERRY KETONE
     Indication: Routine health maintenance
     Dosage: 2000 MILLIGRAM, DAILY
  5. TYROSINE [Concomitant]
     Active Substance: TYROSINE
     Indication: Routine health maintenance
     Dosage: 500 MILLIGRAM, DAILY
  6. GINKGO [Concomitant]
     Active Substance: GINKGO
     Indication: Routine health maintenance
     Dosage: 80 MILLIGRAM, DAILY
  7. VITAMIN A [Concomitant]
     Active Substance: VITAMIN A
     Indication: Routine health maintenance
     Dosage: 25000 INTERNATIONAL UNIT, DAILY
  8. SELENIUM [Concomitant]
     Active Substance: SELENIUM
     Indication: Routine health maintenance
     Dosage: 200 MICROGRAM, DAILY
  9. VITAMINA K2 [Concomitant]
     Indication: Routine health maintenance
     Dosage: 100 MICROGRAM, DAILY
  10. CHROMIUM [Concomitant]
     Active Substance: CHROMIC CHLORIDE\CHROMIUM
     Indication: Routine health maintenance
     Dosage: 200 MICROGRAM, DAILY
  11. PRASTERONE [Concomitant]
     Active Substance: PRASTERONE
     Indication: Routine health maintenance
     Dosage: 50 MILLIGRAM, DAILY
  12. GREEN TEA LEAF EXTRACT [Concomitant]
     Indication: Routine health maintenance
     Dosage: 1450 MILLIGRAM, DAILY
  13. ST. JOHN^S WORT [Concomitant]
     Active Substance: ST. JOHN^S WORT
     Indication: Routine health maintenance
     Dosage: 1600 MILLIGRAM, DAILY
  14. CHONDROITIN;GLUCOSAMINE [Concomitant]
     Indication: Routine health maintenance
     Dosage: 3 CAPSULES, DAILY
  15. L-CARNITINE [LEVOCARNITINE TARTRATE] [Concomitant]
     Indication: Routine health maintenance
     Dosage: 1000 MILLIGRAM, DAILY
  16. RUTIN [RUTOSIDE] [Concomitant]
     Indication: Routine health maintenance
     Dosage: 1350 MILLIGRAM, DAILY
  17. FISH OIL\OMEGA-3 FATTY ACIDS [Concomitant]
     Active Substance: FISH OIL\OMEGA-3 FATTY ACIDS
     Indication: Routine health maintenance
     Dosage: 6000 MILLIGRAM, DAILY
  18. OXITRIPTAN [Concomitant]
     Active Substance: OXITRIPTAN
     Indication: Routine health maintenance
     Dosage: 200 MILLIGRAM, DAILY
  19. VANADYL SULFATE [Concomitant]
     Active Substance: VANADYL SULFATE
     Indication: Routine health maintenance
     Dosage: 10 MILLIGRAM, DAILY
  20. FENUGREEK SEED [Concomitant]
     Active Substance: FENUGREEK SEED
     Indication: Routine health maintenance
     Dosage: 2440 MILLIGRAM, DAILY
  21. DIETARY SUPPLEMENT\HERBALS\MILK THISTLE [Concomitant]
     Active Substance: DIETARY SUPPLEMENT\HERBALS\MILK THISTLE
     Indication: Routine health maintenance
     Dosage: 300 MILLIGRAM, DAILY
  22. TURMERIC [Concomitant]
     Active Substance: TURMERIC
     Indication: Routine health maintenance
     Dosage: 1600 MILLIGRAM, DAILY
  23. MAGNESIUM OXIDE [Concomitant]
     Active Substance: MAGNESIUM OXIDE
     Indication: Routine health maintenance
     Dosage: 1000 MILLIGRAM, QD
  24. ALPHA LIPOIC ACID [Concomitant]
     Active Substance: .ALPHA.-LIPOIC ACID
     Indication: Routine health maintenance
     Dosage: 300 MILLIGRAM, DAILY
  25. LUTEIN + [Concomitant]
     Indication: Routine health maintenance
     Dosage: 20 MILLIGRAM, DAILY
  26. HYALURONIC ACID [Concomitant]
     Active Substance: HYALURONIC ACID
     Indication: Routine health maintenance
     Dosage: 200 MILLIGRAM, DAILY
  27. DONG QUAI [ANGELICA SINENSIS ROOT] [Concomitant]
     Indication: Routine health maintenance
     Dosage: 520 MILLIGRAM, DAILY
  28. GOLDENSEAL ROOT [HYDRASTIS CANADENSIS] [Concomitant]
     Indication: Routine health maintenance
     Dosage: 500 MILLIGRAM, DAILY
  29. THIAMINE [Concomitant]
     Active Substance: THIAMINE
     Indication: Routine health maintenance
     Dosage: 400 MILLIGRAM, DAILY
  30. DIMETHYL SULFONE [Concomitant]
     Active Substance: DIMETHYL SULFONE
     Indication: Routine health maintenance
     Dosage: 4000 MILLIGRAM, DAILY
  31. SUPER ENZYME [Concomitant]
     Indication: Routine health maintenance
     Dosage: 4 CAPSULES, DAILY
  32. PYRIDOXINE HYDROCHLORIDE [Concomitant]
     Active Substance: PYRIDOXINE HYDROCHLORIDE
     Indication: Routine health maintenance
     Dosage: 300 MILLIGRAM, DAILY
  33. CHOLECALCIFEROL [Concomitant]
     Active Substance: CHOLECALCIFEROL
     Indication: Routine health maintenance
     Dosage: 10 000 UNIT, DAILY

REACTIONS (1)
  - Acute kidney injury [Recovering/Resolving]
